FAERS Safety Report 18053627 (Version 1)
Quarter: 2020Q3

REPORT INFORMATION
  Report Type: Spontaneous
  Country: US (occurrence: US)
  Receive Date: 20200721
  Receipt Date: 20200721
  Transmission Date: 20201103
  Serious: Yes (Death)
  Sender: FDA-Public Use
  Company Number: None

PATIENT
  Age: 65 Year
  Sex: Male

DRUGS (1)
  1. ENBREL [Suspect]
     Active Substance: ETANERCEPT
     Indication: OVERLAP SYNDROME
     Route: 058
     Dates: start: 20190124, end: 20200629

REACTIONS (1)
  - Death [None]

NARRATIVE: CASE EVENT DATE: 20200629
